FAERS Safety Report 5369108-0 (Version None)
Quarter: 2007Q2

REPORT INFORMATION
  Report Type: 
  Country: None (occurrence: None)
  Receive Date: 20070625
  Receipt Date: 20070125
  Transmission Date: 20071010
  Serious: No
  Sender: FDA-Public Use
  Company Number: US-ASTRAZENECA-2007UW01592

PATIENT
  Age: 54 Year
  Sex: Male

DRUGS (12)
  1. CRESTOR [Suspect]
     Route: 048
  2. METFORMIN HCL [Suspect]
  3. CARDURA [Concomitant]
  4. TOPROL-XL [Concomitant]
     Route: 048
  5. XANAX [Concomitant]
  6. ASPIRIN [Concomitant]
  7. VITAMIN B [Concomitant]
  8. NITROGLYCERIN [Concomitant]
  9. DARVOCET [Concomitant]
  10. LISINOPRIL [Concomitant]
     Route: 048
  11. PRILOSEC [Concomitant]
     Route: 048
  12. COUMADIN [Concomitant]

REACTIONS (2)
  - CHEST DISCOMFORT [None]
  - DYSPNOEA [None]
